FAERS Safety Report 6477802-3 (Version None)
Quarter: 2009Q4

REPORT INFORMATION
  Report Type: 
  Country: None (occurrence: None)
  Receive Date: 20091207
  Receipt Date: 20091201
  Transmission Date: 20100525
  Serious: Yes (Hospitalization, Other)
  Sender: FDA-Public Use
  Company Number: US-B.I. PHARMACEUTICALS,INC./RIDGEFIELD-2009-BP-13212BP

PATIENT
  Sex: Male

DRUGS (3)
  1. SPIRIVA [Suspect]
     Indication: CHRONIC OBSTRUCTIVE PULMONARY DISEASE
     Dosage: 18 MCG
     Route: 055
     Dates: start: 20090903
  2. SPIRIVA [Suspect]
     Indication: LUNG NEOPLASM MALIGNANT
  3. ALBUTEROL [Suspect]
     Indication: LUNG DISORDER
     Dates: start: 20090801

REACTIONS (3)
  - DEHYDRATION [None]
  - DRUG INEFFECTIVE [None]
  - PAIN [None]
